FAERS Safety Report 9163351 (Version 2)
Quarter: 2013Q2

REPORT INFORMATION
  Report Type: Spontaneous
  Country: BR (occurrence: BR)
  Receive Date: 20130314
  Receipt Date: 20130415
  Transmission Date: 20140414
  Serious: Yes (Other)
  Sender: FDA-Public Use
  Company Number: BR-ROCHE-1201365

PATIENT
  Age: 46 Year
  Sex: Female
  Weight: 52 kg

DRUGS (10)
  1. XOLAIR [Suspect]
     Indication: ASTHMA
     Route: 065
     Dates: start: 20090805
  2. OS-CAL [Concomitant]
  3. DEPURA [Concomitant]
  4. AMINOPHYLLINE [Concomitant]
  5. BEROTEC [Concomitant]
  6. ACCOLATE [Concomitant]
  7. BRICANYL [Concomitant]
  8. FORASEQ [Concomitant]
  9. SANDOGLOBULIN [Concomitant]
  10. ACLASTA [Concomitant]
     Route: 065
     Dates: start: 2012

REACTIONS (2)
  - Hypoglycaemia [Recovered/Resolved]
  - Convulsion [Recovering/Resolving]
